FAERS Safety Report 16850710 (Version 1)
Quarter: 2019Q3

REPORT INFORMATION
  Report Type: Spontaneous
  Country: US (occurrence: US)
  Receive Date: 20190925
  Receipt Date: 20190925
  Transmission Date: 20191005
  Serious: No
  Sender: FDA-Public Use
  Company Number: US-THERAPEUTICSMD-2019TMD01765

PATIENT
  Age: 50 Year
  Sex: Female
  Weight: 94.79 kg

DRUGS (4)
  1. CELECOXIB. [Concomitant]
     Active Substance: CELECOXIB
  2. IMVEXXY [Suspect]
     Active Substance: ESTRADIOL
     Indication: MENOPAUSE
     Dosage: 4 ?G, 2X/WEEK AT NIGHT
     Route: 067
     Dates: start: 201904
  3. CALTRATE [Concomitant]
     Active Substance: CALCIUM CARBONATE
  4. IMVEXXY [Suspect]
     Active Substance: ESTRADIOL
     Indication: DYSPAREUNIA

REACTIONS (4)
  - Malaise [Recovering/Resolving]
  - Seasonal allergy [Recovering/Resolving]
  - Off label use [Not Recovered/Not Resolved]
  - Product dose omission [Recovered/Resolved]

NARRATIVE: CASE EVENT DATE: 201904
